FAERS Safety Report 16926015 (Version 1)
Quarter: 2019Q4

REPORT INFORMATION
  Report Type: Spontaneous
  Country: GR (occurrence: GR)
  Receive Date: 20191016
  Receipt Date: 20191016
  Transmission Date: 20200122
  Serious: Yes (Other)
  Sender: FDA-Public Use
  Company Number: GR-SHIRE-GR201932990

PATIENT

DRUGS (11)
  1. 476 (MESALAZINE/MESALAMINE) [Suspect]
     Active Substance: MESALAMINE
     Dosage: 3 GRAM, 1X/DAY:QD, MATERNAL DOSE: 3 G, QD, 16 WEEKS
     Route: 064
  2. PREDNISOLONE. [Suspect]
     Active Substance: PREDNISOLONE
     Dosage: 50 MICROGRAM, 1X/DAY:QD, MATERNAL DOSE: 50 MG, QD
     Route: 064
  3. CICLOSPORIN [Suspect]
     Active Substance: CYCLOSPORINE
     Dosage: 200 MILLIGRAM, 1X/DAY:QD, MATERNAL DOSE: 200 MG, QD, 32 WEEKS
     Route: 064
  4. AMLODIPINE [Suspect]
     Active Substance: AMLODIPINE BESYLATE
     Indication: FOETAL EXPOSURE DURING PREGNANCY
     Dosage: UNK
     Route: 064
  5. CICLOSPORIN [Suspect]
     Active Substance: CYCLOSPORINE
     Dosage: 300 MILLIGRAM, 1X/DAY:QD, MATERNAL DOSE: 300 MG, QD, 35 WEEKS
     Route: 064
  6. ADALIMUMAB [Suspect]
     Active Substance: ADALIMUMAB
     Indication: FOETAL EXPOSURE DURING PREGNANCY
     Dosage: UNK
     Route: 064
  7. 476 (MESALAZINE/MESALAMINE) [Suspect]
     Active Substance: MESALAMINE
     Indication: FOETAL EXPOSURE DURING PREGNANCY
     Dosage: 3 GRAM, 1X/DAY:QD, MATERNAL DOSE: 3 G, QD, 16 WEEKS
     Route: 064
  8. CICLOSPORIN [Suspect]
     Active Substance: CYCLOSPORINE
     Indication: FOETAL EXPOSURE DURING PREGNANCY
     Dosage: 100 MILLIGRAM, 1X/DAY:QD, MATERNAL DOSE: 100 MG, QD, 30 WEEKS
     Route: 064
  9. CICLOSPORIN [Suspect]
     Active Substance: CYCLOSPORINE
     Dosage: 300 MILLIGRAM, 1X/DAY:QD, MATERNAL DOSE: 300 MG, QD, 34 WEEKS
     Route: 064
  10. VANCOMYCIN [Suspect]
     Active Substance: VANCOMYCIN
     Indication: FOETAL EXPOSURE DURING PREGNANCY
     Dosage: 125 MILLIGRAM, UNKNOWN, MATERNAL DOSE: 125 MG, UNK, 30 WEEK (125 MG X 4)
     Route: 064
  11. PREDNISOLONE. [Suspect]
     Active Substance: PREDNISOLONE
     Indication: FOETAL EXPOSURE DURING PREGNANCY
     Dosage: 40 MILLIGRAM, 1X/DAY:QD, MATERNAL DOSE: 40 MG, QD, 29 WEEKS
     Route: 064

REACTIONS (3)
  - Foetal exposure during pregnancy [Unknown]
  - Premature baby [Unknown]
  - Low birth weight baby [Unknown]
